FAERS Safety Report 7131440-8 (Version None)
Quarter: 2010Q4

REPORT INFORMATION
  Report Type: 
  Country: None (occurrence: None)
  Receive Date: 20101201
  Receipt Date: 20101124
  Transmission Date: 20110411
  Serious: Yes (Hospitalization)
  Sender: FDA-Public Use
  Company Number: PHHO2010GB17424

PATIENT
  Sex: Male
  Weight: 99.1 kg

DRUGS (1)
  1. AMN107 AMN+CAP [Suspect]
     Indication: MALIGNANT MELANOMA
     Dosage: UNK
     Route: 048
     Dates: start: 20100922

REACTIONS (5)
  - MALIGNANT NEOPLASM PROGRESSION [None]
  - METASTASES TO CENTRAL NERVOUS SYSTEM [None]
  - METASTATIC MALIGNANT MELANOMA [None]
  - NAUSEA [None]
  - PERFORMANCE STATUS DECREASED [None]
